FAERS Safety Report 5999497-5 (Version None)
Quarter: 2008Q4

REPORT INFORMATION
  Report Type: 
  Country: None (occurrence: None)
  Receive Date: 20081215
  Receipt Date: 20081209
  Transmission Date: 20090506
  Serious: Yes (Hospitalization)
  Sender: FDA-Public Use
  Company Number: HQWYE399506AUG07

PATIENT
  Sex: Female

DRUGS (36)
  1. SIROLIMUS [Suspect]
     Indication: PROPHYLAXIS AGAINST TRANSPLANT REJECTION
     Route: 048
     Dates: start: 20040819, end: 20041011
  2. SIROLIMUS [Suspect]
     Route: 048
     Dates: start: 20041012, end: 20050119
  3. SIROLIMUS [Suspect]
     Route: 048
     Dates: start: 20050119, end: 20050602
  4. SIROLIMUS [Suspect]
     Route: 048
     Dates: start: 20050603, end: 20050101
  5. SIROLIMUS [Suspect]
     Route: 048
     Dates: start: 20050101, end: 20060224
  6. SIROLIMUS [Suspect]
     Route: 048
     Dates: start: 20060306, end: 20060625
  7. TACROLIMUS [Concomitant]
     Indication: PROPHYLAXIS AGAINST TRANSPLANT REJECTION
     Route: 048
     Dates: start: 20060623
  8. PREDNISONE TAB [Concomitant]
     Indication: PROPHYLAXIS AGAINST TRANSPLANT REJECTION
     Route: 048
     Dates: start: 20040305, end: 20040101
  9. PREDNISONE TAB [Concomitant]
     Dates: start: 20040813
  10. MYCELEX [Concomitant]
     Dosage: UNKNOWN
     Route: 065
     Dates: start: 20040305
  11. BACTRIM [Concomitant]
     Dosage: UNKNOWN
     Route: 065
     Dates: start: 20040305
  12. PROTONIX [Concomitant]
     Dosage: UNKNOWN
     Route: 065
     Dates: start: 20040202, end: 20040623
  13. LASIX [Concomitant]
     Dosage: UNKNOWN
     Route: 065
     Dates: start: 20040820
  14. LIPITOR [Concomitant]
     Dosage: UNKNOWN
     Route: 065
     Dates: start: 20040603
  15. AVANDIA [Concomitant]
     Dosage: UNKNOWN
     Route: 065
     Dates: start: 20040615
  16. NORVASC [Concomitant]
     Dosage: UNKNOWN
     Route: 065
     Dates: start: 20040202
  17. CLONIDINE [Concomitant]
     Dosage: UNKNOWN
     Route: 065
     Dates: start: 20040315
  18. ACETYLSALICYLIC ACID [Concomitant]
     Dosage: UNKNOWN
     Route: 065
     Dates: start: 20050119
  19. MULTI-VITAMINS [Concomitant]
     Dosage: UNKNOWN
     Route: 065
     Dates: start: 20050119
  20. PERCOCET [Concomitant]
     Dosage: UNKNOWN
     Route: 065
     Dates: start: 20050410
  21. COUMADIN [Concomitant]
     Dosage: UNKNOWN
     Route: 065
     Dates: start: 20050624
  22. PLAVIX [Concomitant]
     Dosage: UNKNOWN
     Route: 065
  23. POTASSIUM CHLORIDE [Concomitant]
     Dosage: UNKNOWN
     Route: 065
     Dates: start: 20050725
  24. PAXIL [Concomitant]
     Dosage: UNKNOWN
     Route: 065
     Dates: start: 20040615
  25. METOPROLOL [Concomitant]
     Dosage: UNKNOWN
     Route: 065
     Dates: start: 20050927
  26. SENNA [Concomitant]
     Dosage: UNKNOWN
     Route: 065
     Dates: start: 20050615
  27. TOPRAL [Concomitant]
     Dosage: UNKNOWN
     Route: 065
     Dates: start: 20050927
  28. K-DUR [Concomitant]
     Dosage: UNKNOWN
     Route: 065
     Dates: start: 20060415
  29. TOPROL-XL [Concomitant]
     Dosage: UNKNOWN
     Route: 065
     Dates: start: 20050927
  30. CHLOROPHYLLIN SODIUM COPPER COMPLEX [Concomitant]
     Dosage: UNKNOWN
     Dates: start: 20040915
  31. MYCOPHENOLATE MOFETIL [Suspect]
     Indication: PROPHYLAXIS AGAINST TRANSPLANT REJECTION
     Route: 048
     Dates: start: 20040305, end: 20040101
  32. MYCOPHENOLATE MOFETIL [Suspect]
     Route: 048
     Dates: start: 20040928, end: 20041008
  33. MYCOPHENOLATE MOFETIL [Suspect]
     Dosage: UNKNOWN
     Route: 048
     Dates: start: 20041010, end: 20050207
  34. MYCOPHENOLATE MOFETIL [Suspect]
     Dosage: UNKNOWN
     Route: 048
     Dates: start: 20050209, end: 20060101
  35. MYCOPHENOLATE MOFETIL [Suspect]
     Route: 048
     Dates: start: 20060101, end: 20060624
  36. MYCOPHENOLATE MOFETIL [Suspect]
     Dosage: UNKNOWN
     Route: 048
     Dates: start: 20060601

REACTIONS (5)
  - CELLULITIS [None]
  - CHEST PAIN [None]
  - DIABETIC GASTROPARESIS [None]
  - GASTRITIS [None]
  - PNEUMONIA [None]
